FAERS Safety Report 7523791-X (Version None)
Quarter: 2011Q2

REPORT INFORMATION
  Report Type: 
  Country: None (occurrence: None)
  Receive Date: 20110603
  Receipt Date: 20110530
  Transmission Date: 20111010
  Serious: Yes (Death)
  Sender: FDA-Public Use
  Company Number: GB-ASTRAZENECA-2011SE33275

PATIENT

DRUGS (1)
  1. BUPIVACAINE HCL [Suspect]

REACTIONS (1)
  - HYPOXIC-ISCHAEMIC ENCEPHALOPATHY [None]
